FAERS Safety Report 12261326 (Version 1)
Quarter: 2016Q2

REPORT INFORMATION
  Report Type: Spontaneous
  Country: US (occurrence: None)
  Receive Date: 20160412
  Receipt Date: 20160412
  Transmission Date: 20160815
  Serious: No
  Sender: FDA-Public Use
  Company Number: None

PATIENT
  Age: 16 Year
  Sex: Female
  Weight: 59 kg

DRUGS (5)
  1. OXCARBAZEPINE. [Suspect]
     Active Substance: OXCARBAZEPINE
     Indication: MOOD ALTERED
     Route: 048
     Dates: start: 20160225, end: 20160306
  2. GUANFACINE. [Concomitant]
     Active Substance: GUANFACINE
  3. BUPROPION XL [Concomitant]
     Active Substance: BUPROPION
  4. PRAZOSIN [Concomitant]
     Active Substance: PRAZOSIN
  5. QUETIAPINE. [Concomitant]
     Active Substance: QUETIAPINE

REACTIONS (1)
  - Rash [None]

NARRATIVE: CASE EVENT DATE: 20160306
